FAERS Safety Report 14097668 (Version 1)
Quarter: 2017Q4

REPORT INFORMATION
  Report Type: Spontaneous
  Country: FR (occurrence: FR)
  Receive Date: 20171017
  Receipt Date: 20171017
  Transmission Date: 20180321
  Serious: Yes (Death, Life-Threatening)
  Sender: FDA-Public Use
  Company Number: FR-ROCHE-2009547

PATIENT
  Age: 63 Year
  Sex: Female

DRUGS (2)
  1. NAVELBINE [Concomitant]
     Active Substance: VINORELBINE TARTRATE
     Indication: BREAST CANCER
     Route: 041
     Dates: start: 20170411, end: 20170418
  2. XELODA [Suspect]
     Active Substance: CAPECITABINE
     Indication: BREAST CANCER
     Route: 048
     Dates: start: 20170411, end: 20170418

REACTIONS (2)
  - Mucosal inflammation [Unknown]
  - Bone marrow failure [Fatal]

NARRATIVE: CASE EVENT DATE: 20170421
